FAERS Safety Report 24142252 (Version 1)
Quarter: 2024Q3

REPORT INFORMATION
  Report Type: Spontaneous
  Country: PT (occurrence: None)
  Receive Date: 20240726
  Receipt Date: 20240726
  Transmission Date: 20241016
  Serious: Yes (Hospitalization, Other)
  Sender: ASTRAZENECA
  Company Number: 2024A169198

PATIENT
  Age: 61 Year
  Sex: Female

DRUGS (9)
  1. QUETIAPINE [Suspect]
     Active Substance: QUETIAPINE
     Indication: Depression
     Dosage: 50.0MG UNKNOWN
     Route: 048
  2. QUETIAPINE [Suspect]
     Active Substance: QUETIAPINE
     Indication: Suicide attempt
     Dosage: 50.0MG UNKNOWN
     Route: 048
  3. QUETIAPINE [Suspect]
     Active Substance: QUETIAPINE
     Indication: Depression
     Dosage: 55 TABLETS2750.0MG UNKNOWN
     Route: 048
  4. QUETIAPINE [Suspect]
     Active Substance: QUETIAPINE
     Indication: Suicide attempt
     Dosage: 55 TABLETS2750.0MG UNKNOWN
     Route: 048
  5. AMISULPRIDE [Concomitant]
     Active Substance: AMISULPRIDE
     Indication: Depression
  6. VENLAFAXINE [Concomitant]
     Active Substance: VENLAFAXINE HYDROCHLORIDE
     Indication: Depression
     Dosage: 225.0MG UNKNOWN
  7. SALBUTIAMINE [Concomitant]
     Indication: Depression
     Dosage: 200.0MG UNKNOWN
  8. TRAZODONE [Concomitant]
     Active Substance: TRAZODONE HYDROCHLORIDE
     Indication: Depression
     Dosage: 50.0MG UNKNOWN
  9. ZOLPIDEM [Concomitant]
     Active Substance: ZOLPIDEM TARTRATE
     Indication: Depression
     Dosage: 10.0MG UNKNOWN

REACTIONS (3)
  - Intentional overdose [Recovering/Resolving]
  - Suicide attempt [Unknown]
  - Depressed level of consciousness [Recovering/Resolving]
